FAERS Safety Report 8530963-4 (Version None)
Quarter: 2012Q3

REPORT INFORMATION
  Report Type: 
  Country: None (occurrence: None)
  Receive Date: 20120710
  Receipt Date: 20120626
  Transmission Date: 20120928
  Serious: Yes (Congenital Anomaly)
  Sender: FDA-Public Use
  Company Number: 1340939

PATIENT

DRUGS (2)
  1. DOXORUBICIN HYDROCHLORIDE [Suspect]
     Dosage: TRANSPLACENTAL
     Route: 064
  2. VINCRISTINE SULFATE [Suspect]
     Dosage: UNKNOWN

REACTIONS (2)
  - MATERNAL DRUGS AFFECTING FOETUS [None]
  - MICROCEPHALY [None]
